FAERS Safety Report 18006598 (Version 2)
Quarter: 2020Q3

REPORT INFORMATION
  Report Type: Spontaneous
  Country: US (occurrence: US)
  Receive Date: 20200710
  Receipt Date: 20200827
  Transmission Date: 20201103
  Serious: Yes (Other)
  Sender: FDA-Public Use
  Company Number: US-PFIZER INC-2020264725

PATIENT
  Age: 59 Year
  Sex: Female
  Weight: 74.84 kg

DRUGS (1)
  1. DEPO?ESTRADIOL [Suspect]
     Active Substance: ESTRADIOL CYPIONATE
     Indication: HYSTERECTOMY
     Dosage: 1 ML, MONTHLY
     Route: 030

REACTIONS (6)
  - Seizure [Unknown]
  - Bacterial infection [Unknown]
  - Dizziness [Unknown]
  - Dementia Alzheimer^s type [Unknown]
  - Injection site abscess [Unknown]
  - Hormone level abnormal [Unknown]
